FAERS Safety Report 13668024 (Version 2)
Quarter: 2017Q3

REPORT INFORMATION
  Report Type: Spontaneous
  Country: US (occurrence: US)
  Receive Date: 20170620
  Receipt Date: 20170707
  Transmission Date: 20171127
  Serious: No
  Sender: FDA-Public Use
  Company Number: US-PFIZER INC-2017265252

PATIENT
  Age: 72 Year
  Sex: Male

DRUGS (8)
  1. CHANTIX [Suspect]
     Active Substance: VARENICLINE TARTRATE
     Dosage: 1 MG, DAILY (TWO 0.5 MG TABLETS FOR DAY 4-7)
     Dates: start: 20170519, end: 20170521
  2. LUTEIN [Concomitant]
     Active Substance: LUTEIN
     Indication: EYE DISORDER
     Dosage: UNK UNK, 1X/DAY (ONCE A DAY)
  3. CENTRUM SILVER /07431401/ [Concomitant]
     Dosage: 1 DF, DAILY (1 A DAY)
  4. CALCIUM W/VITAMIN D [Concomitant]
     Active Substance: CALCIUM\VITAMIN D
     Dosage: UNK, 1X/DAY (ONCE A DAY)
  5. CHANTIX [Suspect]
     Active Substance: VARENICLINE TARTRATE
     Dosage: 1 MG, 2X/DAY (1 MG IN THE AM AND EVENING FOR DAY 8-28 )
     Dates: start: 20170522, end: 20170611
  6. CHANTIX [Suspect]
     Active Substance: VARENICLINE TARTRATE
     Indication: SMOKING CESSATION THERAPY
     Dosage: 1 DF, 1X/DAY (ONE PILL IN THE AM FOR DAY 1-3)
     Dates: start: 20170516, end: 20170518
  7. ALFUZOSIN HCL [Concomitant]
     Active Substance: ALFUZOSIN HYDROCHLORIDE
     Indication: PROSTATIC DISORDER
     Dosage: 10 MG, 1X/DAY (10MG, TABLETS ONCE A DAY)
  8. FISH OIL AND OMEGA 3 [Concomitant]
     Dosage: 1 DF, 1X/DAY (ONE TABLET ONCE A DAY)

REACTIONS (6)
  - Dysstasia [Not Recovered/Not Resolved]
  - Myalgia [Unknown]
  - Pain in extremity [Not Recovered/Not Resolved]
  - Gait disturbance [Not Recovered/Not Resolved]
  - Arthralgia [Unknown]
  - Weight increased [Unknown]

NARRATIVE: CASE EVENT DATE: 201706
